FAERS Safety Report 4886005-5 (Version None)
Quarter: 2006Q1

REPORT INFORMATION
  Report Type: 
  Country: None (occurrence: None)
  Receive Date: 20060117
  Receipt Date: 20060102
  Transmission Date: 20060701
  Serious: Yes (Hospitalization)
  Sender: FDA-Public Use
  Company Number: 13193

PATIENT
  Age: 74 Year
  Sex: Female
  Weight: 67 kg

DRUGS (9)
  1. CARBOPLATIN [Suspect]
     Dates: start: 20051205, end: 20051216
  2. GEMZAR [Suspect]
  3. CALCIPRANE [Concomitant]
  4. INNOHEP [Concomitant]
  5. GEMZAR [Concomitant]
  6. LOXEN [Concomitant]
  7. TEMESTA [Concomitant]
  8. OGAST [Concomitant]
  9. ORGANRAN [Concomitant]

REACTIONS (3)
  - ANAEMIA [None]
  - GASTRIC ULCER HAEMORRHAGE [None]
  - THROMBOCYTOPENIA [None]
